FAERS Safety Report 6957021-4 (Version None)
Quarter: 2010Q3

REPORT INFORMATION
  Report Type: 
  Country: None (occurrence: None)
  Receive Date: 20100827
  Receipt Date: 20100827
  Transmission Date: 20110219
  Serious: No
  Sender: FDA-Public Use
  Company Number: None

PATIENT
  Age: 57 Year
  Sex: Male
  Weight: 182 kg

DRUGS (2)
  1. VANCOMYCIN [Suspect]
     Indication: CELLULITIS STAPHYLOCOCCAL
     Dosage: 2000 MG EVERY 12 HOURS IV DRIP, TOTAL OF 9 DOSES GIVEN
     Route: 041
  2. ZOSYN [Concomitant]

REACTIONS (1)
  - STEVENS-JOHNSON SYNDROME [None]
